FAERS Safety Report 10377136 (Version 3)
Quarter: 2014Q3

REPORT INFORMATION
  Report Type: Report from Study
  Country: JP (occurrence: JP)
  Receive Date: 20140812
  Receipt Date: 20140903
  Transmission Date: 20150326
  Serious: Yes (Death, Life-Threatening, Other)
  Sender: FDA-Public Use
  Company Number: JP-ROCHE-1391286

PATIENT
  Age: 50 Year
  Sex: Female
  Weight: 51 kg

DRUGS (5)
  1. FAMOTIDINE. [Concomitant]
     Active Substance: FAMOTIDINE
     Indication: ABDOMINAL DISCOMFORT
     Route: 065
     Dates: start: 20131216, end: 20140121
  2. BEVACIZUMAB [Suspect]
     Active Substance: BEVACIZUMAB
     Indication: BREAST CANCER METASTATIC
     Route: 041
     Dates: start: 20131210, end: 20140121
  3. BEVACIZUMAB [Suspect]
     Active Substance: BEVACIZUMAB
     Route: 041
     Dates: start: 20140121, end: 20140325
  4. DEXAMETHASONE. [Concomitant]
     Active Substance: DEXAMETHASONE
     Indication: MALAISE
     Route: 065
     Dates: start: 20131216, end: 20140121
  5. PACLITAXEL. [Suspect]
     Active Substance: PACLITAXEL
     Indication: BREAST CANCER METASTATIC
     Route: 041
     Dates: start: 20131210, end: 20140121

REACTIONS (10)
  - Epistaxis [Recovering/Resolving]
  - Epistaxis [Not Recovered/Not Resolved]
  - Breast cancer metastatic [Fatal]
  - Disseminated intravascular coagulation [Recovering/Resolving]
  - Oesophageal varices haemorrhage [Recovering/Resolving]
  - Oesophageal varices haemorrhage [Unknown]
  - Febrile neutropenia [Unknown]
  - Neutrophil count decreased [Unknown]
  - Sepsis [Recovering/Resolving]
  - Delirium [Unknown]

NARRATIVE: CASE EVENT DATE: 20131217
